FAERS Safety Report 11618984 (Version 2)
Quarter: 2016Q3

REPORT INFORMATION
  Report Type: Report from Study
  Country: JP (occurrence: JP)
  Receive Date: 20151012
  Receipt Date: 20160911
  Transmission Date: 20161109
  Serious: Yes (Hospitalization, Other)
  Sender: FDA-Public Use
  Company Number: PHHY2013JP040397

PATIENT
  Age: 76 Year
  Sex: Male
  Weight: 56 kg

DRUGS (2)
  1. AFINITOR [Suspect]
     Active Substance: EVEROLIMUS
     Indication: PANCREATIC NEUROENDOCRINE TUMOUR
     Dosage: 10 MG, QD
     Route: 048
     Dates: start: 20121004, end: 20130111
  2. AFINITOR [Suspect]
     Active Substance: EVEROLIMUS
     Indication: NEUROENDOCRINE TUMOUR
     Dosage: 5 MG, QD
     Route: 048
     Dates: start: 20130321, end: 20130513

REACTIONS (19)
  - Decreased appetite [Recovered/Resolved]
  - Cough [Recovered/Resolved]
  - Weight increased [Recovered/Resolved]
  - Stomatitis [Not Recovered/Not Resolved]
  - Hypoproteinaemia [Recovered/Resolved]
  - Blood albumin decreased [Unknown]
  - Malignant neoplasm progression [Not Recovered/Not Resolved]
  - Pleural effusion [Unknown]
  - Mitral valve incompetence [Recovered/Resolved]
  - Pulmonary hypertension [Recovered/Resolved]
  - Pyrexia [Recovered/Resolved]
  - Oedema peripheral [Recovered/Resolved]
  - Tricuspid valve incompetence [Recovered/Resolved]
  - Jaundice [Recovering/Resolving]
  - Pneumonia bacterial [Recovered/Resolved]
  - Anaemia [Not Recovered/Not Resolved]
  - Cardiac failure [Recovered/Resolved]
  - Dyspnoea [Recovered/Resolved]
  - Atrial fibrillation [Recovered/Resolved]

NARRATIVE: CASE EVENT DATE: 20121025
